FAERS Safety Report 4692219-X (Version None)
Quarter: 2005Q2

REPORT INFORMATION
  Report Type: 
  Country: None (occurrence: None)
  Receive Date: 20050614
  Receipt Date: 20050523
  Transmission Date: 20051028
  Serious: Yes (Other)
  Sender: FDA-Public Use
  Company Number: TRP_0135_2005

PATIENT
  Age: 65 Year
  Sex: Male

DRUGS (4)
  1. RIBAVIRIN [Suspect]
     Indication: HEPATITIS C
     Dosage: SEE TEXT Q DAY PO
     Route: 048
  2. INTERFERON BETA [Suspect]
     Indication: HEPATITIS C
     Dosage: 6MU  QDAY  SC
     Route: 058
  3. INTERFERON ALPHA 2B [Suspect]
     Indication: HEPATITIS C
     Dosage: 6 MU QDAY SC
     Route: 058
  4. INTERFERON ALPHA 2B [Suspect]
     Indication: HEPATITIS C
     Dosage: 6 MU 3XWK SC
     Route: 058

REACTIONS (4)
  - CONDITION AGGRAVATED [None]
  - LICHEN PLANUS [None]
  - ORAL LICHEN PLANUS [None]
  - SKIN DISORDER [None]
